FAERS Safety Report 24612504 (Version 1)
Quarter: 2024Q4

REPORT INFORMATION
  Report Type: Spontaneous
  Country: GB (occurrence: GB)
  Receive Date: 20241113
  Receipt Date: 20241113
  Transmission Date: 20250115
  Serious: Yes (Other)
  Sender: ACCORD
  Company Number: None

PATIENT
  Age: 36 Year
  Sex: Male
  Weight: 81 kg

DRUGS (1)
  1. FINASTERIDE [Suspect]
     Active Substance: FINASTERIDE
     Indication: Androgenetic alopecia
     Dosage: 1MG NOCTE
     Dates: start: 20240601

REACTIONS (6)
  - Depression [Recovering/Resolving]
  - Loss of libido [Recovering/Resolving]
  - Genital disorder [Recovering/Resolving]
  - Tearfulness [Recovering/Resolving]
  - Semen volume decreased [Recovering/Resolving]
  - Erectile dysfunction [Recovering/Resolving]
